FAERS Safety Report 16984751 (Version 1)
Quarter: 2019Q4

REPORT INFORMATION
  Report Type: Report from Study
  Country: None (occurrence: US)
  Receive Date: 20191101
  Receipt Date: 20191101
  Transmission Date: 20200122
  Serious: Yes (Other)
  Sender: FDA-Public Use
  Company Number: US-ABBVIE-19K-163-2922465-00

PATIENT
  Sex: Male

DRUGS (3)
  1. OPIATE SQUILL LINCTUS (DRIMIA MARITIMA BULB\PAPAVER SOMNIFERUM DRY LATEX) [Suspect]
     Active Substance: DRIMIA MARITIMA BULB\OPIUM
     Indication: DEPENDENCE
     Route: 065
  2. HUMIRA [Suspect]
     Active Substance: ADALIMUMAB
     Route: 058
     Dates: start: 201910
  3. HUMIRA [Suspect]
     Active Substance: ADALIMUMAB
     Indication: CROHN^S DISEASE
     Route: 058
     Dates: start: 20190709, end: 2019

REACTIONS (11)
  - Crohn^s disease [Not Recovered/Not Resolved]
  - Nausea [Not Recovered/Not Resolved]
  - Insomnia [Not Recovered/Not Resolved]
  - Dependence [Unknown]
  - Depression [Unknown]
  - Headache [Unknown]
  - Vomiting [Not Recovered/Not Resolved]
  - Food intolerance [Unknown]
  - Bronchitis [Unknown]
  - Anxiety [Not Recovered/Not Resolved]
  - Constipation [Unknown]

NARRATIVE: CASE EVENT DATE: 2019
